FAERS Safety Report 4302658-4 (Version None)
Quarter: 2004Q1

REPORT INFORMATION
  Report Type: 
  Country: None (occurrence: None)
  Receive Date: 20040220
  Receipt Date: 20040206
  Transmission Date: 20041129
  Serious: Yes (Disabling)
  Sender: FDA-Public Use
  Company Number: 2004008201

PATIENT
  Age: 12 Year
  Sex: Male
  Weight: 90 kg

DRUGS (1)
  1. ZITHROMAX [Suspect]
     Indication: STREPTOCOCCAL INFECTION
     Dosage: ORAL
     Route: 048
     Dates: start: 20040101

REACTIONS (2)
  - RETCHING [None]
  - TIC [None]
